FAERS Safety Report 6430668-X (Version None)
Quarter: 2009Q4

REPORT INFORMATION
  Report Type: 
  Country: None (occurrence: None)
  Receive Date: 20091106
  Receipt Date: 20091030
  Transmission Date: 20100525
  Serious: Yes (Hospitalization)
  Sender: FDA-Public Use
  Company Number: B0601838A

PATIENT
  Sex: Female
  Weight: 114 kg

DRUGS (9)
  1. TOPOTECAN [Suspect]
     Indication: SMALL CELL LUNG CANCER EXTENSIVE STAGE
     Dosage: 3.1MG CYCLIC
     Dates: start: 20090824
  2. PEGFILGRASTIM [Concomitant]
     Indication: PROPHYLAXIS
     Dosage: 6MG CYCLIC
     Route: 058
  3. GRANISETRON HCL [Concomitant]
     Indication: PROPHYLAXIS
     Dosage: 3MG CYCLIC
     Route: 042
  4. DYTIDE [Concomitant]
     Indication: OEDEMA PERIPHERAL
     Dosage: 1TAB PER DAY
     Route: 048
     Dates: start: 20090406
  5. COTRIM [Concomitant]
     Indication: URINARY TRACT INFECTION
     Dosage: 2TAB PER DAY
     Route: 048
     Dates: start: 20090826
  6. ENOXAPARIN SODIUM [Concomitant]
     Indication: THROMBOSIS PROPHYLAXIS
     Dosage: 40MG PER DAY
     Route: 058
     Dates: start: 20090824, end: 20090828
  7. ZOLPIDEM [Concomitant]
     Indication: SLEEP DISORDER
     Dosage: 1TAB AS REQUIRED
     Route: 048
     Dates: start: 20090312
  8. METAMIZOLE [Concomitant]
     Indication: BACK PAIN
     Dosage: 30U AS REQUIRED
     Route: 048
     Dates: start: 20090821
  9. DULCOLAX [Concomitant]
     Indication: CONSTIPATION
     Dosage: 5MG PER DAY
     Route: 048
     Dates: start: 20090820

REACTIONS (5)
  - ASTHENIA [None]
  - CONSTIPATION [None]
  - GAIT DISTURBANCE [None]
  - GENERAL PHYSICAL HEALTH DETERIORATION [None]
  - NAUSEA [None]
